FAERS Safety Report 26055937 (Version 1)
Quarter: 2025Q4

REPORT INFORMATION
  Report Type: Spontaneous
  Country: EU (occurrence: EU)
  Receive Date: 20251118
  Receipt Date: 20251118
  Transmission Date: 20260117
  Serious: Yes (Other)
  Sender: JOHNSON AND JOHNSON
  Company Number: EU-JNJFOC-20251150703

PATIENT
  Age: 65 Year
  Sex: Male

DRUGS (2)
  1. BALVERSA [Suspect]
     Active Substance: ERDAFITINIB
     Indication: Non-small cell lung cancer
     Route: 048
     Dates: start: 20250404, end: 20250506
  2. BALVERSA [Suspect]
     Active Substance: ERDAFITINIB
     Route: 048
     Dates: start: 20250528

REACTIONS (6)
  - Retinal oedema [Unknown]
  - Retinal detachment [Unknown]
  - Retinal deposits [Unknown]
  - Subretinal fluid [Unknown]
  - Hyperphosphataemia [Unknown]
  - Off label use [Unknown]

NARRATIVE: CASE EVENT DATE: 20250404
